FAERS Safety Report 5334853-X (Version None)
Quarter: 2007Q2

REPORT INFORMATION
  Report Type: 
  Country: None (occurrence: None)
  Receive Date: 20070525
  Receipt Date: 20070515
  Transmission Date: 20071010
  Serious: Yes (Life-Threatening, Hospitalization, Disabling, Other)
  Sender: FDA-Public Use
  Company Number: US-MERCK-0701USA00246

PATIENT
  Age: 54 Year
  Sex: Male

DRUGS (3)
  1. JANUVIA [Suspect]
     Indication: DIABETES MELLITUS INADEQUATE CONTROL
     Route: 048
     Dates: start: 20061101, end: 20070101
  2. LISINOPRIL [Concomitant]
     Route: 065
  3. ANTIMICROBIAL (UNSPECIFIED) [Concomitant]
     Route: 065

REACTIONS (10)
  - ACUTE HEPATIC FAILURE [None]
  - BLOOD ALBUMIN DECREASED [None]
  - CARDIAC FAILURE CONGESTIVE [None]
  - COAGULOPATHY [None]
  - GALLBLADDER DISORDER [None]
  - HEPATIC ISCHAEMIA [None]
  - HEPATITIS [None]
  - OEDEMA [None]
  - PNEUMONIA [None]
  - WEIGHT DECREASED [None]
